FAERS Safety Report 11883381 (Version 2)
Quarter: 2016Q1

REPORT INFORMATION
  Report Type: Spontaneous
  Country: US (occurrence: US)
  Receive Date: 20151231
  Receipt Date: 20160125
  Transmission Date: 20160526
  Serious: No
  Sender: FDA-Public Use
  Company Number: US-PFIZER INC-2015477641

PATIENT
  Age: 32 Year
  Sex: Male
  Weight: 92.99 kg

DRUGS (2)
  1. CHANTIX [Suspect]
     Active Substance: VARENICLINE TARTRATE
     Indication: SMOKING CESSATION THERAPY
     Dosage: UNK (STARTER PACK)
     Route: 048
     Dates: start: 201510, end: 2015
  2. CHANTIX [Suspect]
     Active Substance: VARENICLINE TARTRATE
     Dosage: 1 MG, 2X/DAY
     Route: 048
     Dates: start: 2015, end: 20151218

REACTIONS (6)
  - Depression [Recovered/Resolved]
  - Drug prescribing error [Unknown]
  - Feeling abnormal [Recovered/Resolved]
  - Drug effect incomplete [Unknown]
  - Disorientation [Recovered/Resolved]
  - Abnormal dreams [Recovered/Resolved]

NARRATIVE: CASE EVENT DATE: 2015
